FAERS Safety Report 10080842 (Version 1)
Quarter: 2014Q2

REPORT INFORMATION
  Report Type: Spontaneous
  Country: GB (occurrence: GB)
  Receive Date: 20140416
  Receipt Date: 20140416
  Transmission Date: 20141212
  Serious: Yes (Death, Hospitalization)
  Sender: FDA-Public Use
  Company Number: GB-ROCHE-1384510

PATIENT
  Age: 93 Year
  Sex: Male

DRUGS (7)
  1. NAPROXEN [Suspect]
     Indication: BACK PAIN
     Route: 048
     Dates: start: 20140123, end: 20140202
  2. CO-CODAMOL [Concomitant]
  3. LOSARTAN [Concomitant]
  4. METFORMIN [Concomitant]
     Route: 065
  5. NIFEDIPINE [Concomitant]
  6. SIMVASTATIN [Concomitant]
  7. TAMSULOSIN [Concomitant]

REACTIONS (6)
  - Gastric haemorrhage [Fatal]
  - Renal failure acute [Unknown]
  - Duodenal ulcer [Unknown]
  - Haematemesis [Unknown]
  - Hyperkalaemia [Unknown]
  - Shock [Unknown]
